FAERS Safety Report 12459145 (Version 2)
Quarter: 2016Q2

REPORT INFORMATION
  Report Type: Report from Study
  Country: US (occurrence: US)
  Receive Date: 20160613
  Receipt Date: 20160623
  Transmission Date: 20160815
  Serious: Yes (Hospitalization)
  Sender: FDA-Public Use
  Company Number: US-ASTRAZENECA-2016SE59005

PATIENT
  Age: 875 Month
  Sex: Male
  Weight: 75.8 kg

DRUGS (7)
  1. LISINOPRIL. [Suspect]
     Active Substance: LISINOPRIL
     Indication: HYPERTENSION
     Route: 048
  2. TRAMADOL. [Concomitant]
     Active Substance: TRAMADOL
  3. LOSARTEN [Concomitant]
     Active Substance: LOSARTAN
  4. DIURETIC [Concomitant]
     Active Substance: UNSPECIFIED INGREDIENT
  5. METOPROLOL. [Suspect]
     Active Substance: METOPROLOL
     Indication: HYPERTENSION
     Route: 048
     Dates: start: 2012, end: 2012
  6. MONTELUKAST [Concomitant]
     Active Substance: MONTELUKAST SODIUM
     Indication: MULTIPLE ALLERGIES
     Route: 048
  7. NEXIUM [Suspect]
     Active Substance: ESOMEPRAZOLE MAGNESIUM
     Indication: GASTROOESOPHAGEAL REFLUX DISEASE
     Route: 048
     Dates: start: 2001

REACTIONS (36)
  - Prostatic specific antigen increased [Unknown]
  - Face injury [Unknown]
  - Face oedema [Unknown]
  - Insomnia [Unknown]
  - Gastrooesophageal reflux disease [Recovered/Resolved]
  - Drug hypersensitivity [Unknown]
  - Visual impairment [Unknown]
  - Abdominal wall mass [Unknown]
  - Back disorder [Unknown]
  - Fall [Unknown]
  - Condition aggravated [Unknown]
  - Dysuria [Unknown]
  - Catheter site haemorrhage [Unknown]
  - Pain [Unknown]
  - Urticaria [Unknown]
  - Neck pain [Unknown]
  - Hypertension [Unknown]
  - Weight decreased [Unknown]
  - Prostatic obstruction [Unknown]
  - Osteopenia [Unknown]
  - Hypoaesthesia [Unknown]
  - Intervertebral disc degeneration [Unknown]
  - Spinal column stenosis [Unknown]
  - Peripheral swelling [Unknown]
  - Osteoarthritis [Unknown]
  - Post-traumatic neck syndrome [Unknown]
  - Blood cholesterol increased [Unknown]
  - Skin erosion [Unknown]
  - Panic attack [Unknown]
  - Blood urine present [Unknown]
  - Prostatomegaly [Unknown]
  - Contusion [Unknown]
  - Therapy change [Unknown]
  - Gait disturbance [Unknown]
  - Back pain [Unknown]
  - Intentional product misuse [Unknown]

NARRATIVE: CASE EVENT DATE: 201202
